FAERS Safety Report 14823896 (Version 1)
Quarter: 2018Q2

REPORT INFORMATION
  Report Type: Spontaneous
  Country: TR (occurrence: TR)
  Receive Date: 20180428
  Receipt Date: 20180428
  Transmission Date: 20180711
  Serious: Yes (Other)
  Sender: FDA-Public Use
  Company Number: TR-AMGEN-TURSP2018056282

PATIENT
  Age: 38 Year
  Sex: Male

DRUGS (3)
  1. INH [Concomitant]
     Active Substance: ISONIAZID
     Dosage: UNK
  2. ENBREL [Suspect]
     Active Substance: ETANERCEPT
     Indication: ANKYLOSING SPONDYLITIS
     Dosage: 50 MG, QWK
     Route: 058
     Dates: start: 20170920, end: 201802
  3. ENBREL [Suspect]
     Active Substance: ETANERCEPT
     Dosage: 50 MG, QWK
     Route: 058

REACTIONS (2)
  - Laceration [Recovering/Resolving]
  - Tendon injury [Recovering/Resolving]

NARRATIVE: CASE EVENT DATE: 20180203
